FAERS Safety Report 9100400 (Version 15)
Quarter: 2014Q2

REPORT INFORMATION
  Report Type: Spontaneous
  Country: CA (occurrence: CA)
  Receive Date: 20130215
  Receipt Date: 20140626
  Transmission Date: 20141212
  Serious: Yes (Hospitalization, Other)
  Sender: FDA-Public Use
  Company Number: CA-ROCHE-1179272

PATIENT
  Age: 23 Year
  Sex: Female

DRUGS (15)
  1. XOLAIR [Suspect]
     Indication: ASTHMA
     Route: 058
     Dates: start: 20120612
  2. XOLAIR [Suspect]
     Route: 058
     Dates: start: 20130211
  3. XOLAIR [Suspect]
     Route: 058
  4. XOLAIR [Suspect]
     Route: 058
     Dates: start: 20140227
  5. XOLAIR [Suspect]
     Route: 058
     Dates: start: 20130403
  6. XOLAIR [Suspect]
     Route: 058
     Dates: start: 20140417
  7. SYMBICORT [Concomitant]
  8. ALVESCO [Concomitant]
  9. VENTOLIN [Concomitant]
  10. SINGULAIR [Concomitant]
  11. PULMOZYME [Concomitant]
  12. PREDNISONE [Concomitant]
  13. CIMETIDINE [Concomitant]
  14. ZITHROMAX [Concomitant]
  15. TOBI [Concomitant]

REACTIONS (18)
  - Respiratory disorder [Unknown]
  - Cystic fibrosis [Recovering/Resolving]
  - Lung infection [Unknown]
  - Lung infection [Recovering/Resolving]
  - Bronchitis [Unknown]
  - Drug ineffective [Unknown]
  - Bronchial disorder [Unknown]
  - Diabetes mellitus [Unknown]
  - Weight decreased [Unknown]
  - Cough [Unknown]
  - Fatigue [Unknown]
  - Heart rate increased [Unknown]
  - Weight increased [Unknown]
  - Influenza [Unknown]
  - Nasopharyngitis [Unknown]
  - Asthenia [Unknown]
  - Dizziness [Unknown]
  - Hypoglycaemia [Unknown]
